FAERS Safety Report 14961623 (Version 1)
Quarter: 2018Q2

REPORT INFORMATION
  Report Type: Other
  Country: US (occurrence: US)
  Receive Date: 20180601
  Receipt Date: 20180601
  Transmission Date: 20180711
  Serious: Yes (Death, Other)
  Sender: FDA-Public Use
  Company Number: US-WES PHARMA INC-2048823

PATIENT
  Age: 45 Year
  Sex: Male

DRUGS (2)
  1. OXYCODONE HYDROCHLORIDE. [Suspect]
     Active Substance: OXYCODONE HYDROCHLORIDE
     Indication: PRODUCT USED FOR UNKNOWN INDICATION
     Route: 065
  2. CYCLOBENZAPRINE. [Suspect]
     Active Substance: CYCLOBENZAPRINE
     Route: 065

REACTIONS (14)
  - Depressed level of consciousness [Unknown]
  - Rhabdomyolysis [Unknown]
  - Toxicity to various agents [Unknown]
  - Death [Fatal]
  - Anion gap [Unknown]
  - Coagulopathy [Unknown]
  - Leukocytosis [Unknown]
  - Acute lung injury [Unknown]
  - Gastrointestinal haemorrhage [Unknown]
  - Electrocardiogram QRS complex prolonged [Unknown]
  - Metabolic acidosis [Unknown]
  - Hypotension [Unknown]
  - Bradycardia [Unknown]
  - Acute kidney injury [Unknown]
